FAERS Safety Report 11133144 (Version 1)
Quarter: 2015Q2

REPORT INFORMATION
  Report Type: Report from Study
  Country: CN (occurrence: CN)
  Receive Date: 20150522
  Receipt Date: 20150522
  Transmission Date: 20150821
  Serious: Yes (Hospitalization)
  Sender: FDA-Public Use
  Company Number: CN-TAKEDA-2014TUS011079

PATIENT
  Age: 61 Year
  Sex: Male
  Weight: 65.5 kg

DRUGS (8)
  1. BLINDED FEBUXOSTAT [Suspect]
     Active Substance: FEBUXOSTAT
     Dosage: 80 MG, QD
     Route: 048
     Dates: start: 20141031, end: 20141225
  2. BLINDED FEBUXOSTAT [Suspect]
     Active Substance: FEBUXOSTAT
     Dosage: 60 MG, QD
     Route: 048
     Dates: start: 20140905, end: 20141030
  3. BLINDED ALLOPURINOL [Suspect]
     Active Substance: ALLOPURINOL
     Indication: HYPERURICAEMIA
     Route: 048
     Dates: start: 20140710, end: 20140807
  4. BLINDED ALLOPURINOL [Suspect]
     Active Substance: ALLOPURINOL
     Dosage: BLINDED
     Route: 048
     Dates: start: 20140808, end: 20140904
  5. BLINDED FEBUXOSTAT [Suspect]
     Active Substance: FEBUXOSTAT
     Dosage: BLINDED
     Route: 048
     Dates: start: 20140808, end: 20140904
  6. BLINDED FEBUXOSTAT [Suspect]
     Active Substance: FEBUXOSTAT
     Indication: HYPERURICAEMIA
     Route: 048
     Dates: start: 20140710, end: 20140807
  7. BLINDED ALLOPURINOL [Suspect]
     Active Substance: ALLOPURINOL
     Dosage: 60 MG, QD
     Route: 048
     Dates: start: 20140905, end: 20141030
  8. BLINDED ALLOPURINOL [Suspect]
     Active Substance: ALLOPURINOL
     Dosage: 80 MG, QD
     Route: 048
     Dates: start: 20141031, end: 20141225

REACTIONS (2)
  - Urinary tract infection [Recovered/Resolved]
  - Calculus urinary [Recovered/Resolved]

NARRATIVE: CASE EVENT DATE: 20140924
